FAERS Safety Report 16253539 (Version 5)
Quarter: 2019Q3

REPORT INFORMATION
  Report Type: Spontaneous
  Country: IT (occurrence: IT)
  Receive Date: 20190430
  Receipt Date: 20190929
  Transmission Date: 20191004
  Serious: Yes (Hospitalization, Other)
  Sender: FDA-Public Use
  Company Number: IT-AUROBINDO-AUR-APL-2019-022993

PATIENT
  Age: 74 Year
  Sex: Female
  Weight: 68 kg

DRUGS (10)
  1. PACLITAXEL CONCENTRATE FOR SOLUTION FOR INFUSION [Suspect]
     Active Substance: PACLITAXEL
     Indication: OVARIAN CANCER
     Dosage: 243 MILLIGRAM, EVERY 3 WEEKS
     Route: 042
     Dates: start: 20190307, end: 20190503
  2. CARBOPLATIN CONCENTRATE FOR SOLUTION FOR INFUSION [Suspect]
     Active Substance: CARBOPLATIN
     Dosage: 243 MILLIGRAM, EVERY WEEK
     Route: 042
     Dates: start: 20190307, end: 20190502
  3. PACLITAXEL CONCENTRATE FOR SOLUTION FOR INFUSION [Suspect]
     Active Substance: PACLITAXEL
     Dosage: 497 MILLIGRAM, EVERY 3 WEEKS
     Route: 042
     Dates: start: 20190307, end: 20190502
  4. TENORMIN [Concomitant]
     Active Substance: ATENOLOL
     Indication: HYPERTENSION
     Dosage: 100 MILLIGRAM, DAILY (1X/DAY)
     Route: 048
     Dates: start: 2019
  5. CARBOPLATIN CONCENTRATE FOR SOLUTION FOR INFUSION [Suspect]
     Active Substance: CARBOPLATIN
     Dosage: 497 MILLIGRAM, EVERY 3 WEEKS
     Route: 042
     Dates: start: 20190307, end: 20190503
  6. BEVACIZUMAB. [Suspect]
     Active Substance: BEVACIZUMAB
     Indication: OVARIAN CANCER
     Dosage: 1005 MILLIGRAM/KILOGRAM, EVERY 3 WEEKS
     Route: 042
     Dates: start: 20190307, end: 20190502
  7. TIROSINT [Concomitant]
     Active Substance: LEVOTHYROXINE SODIUM
     Indication: HYPOTHYROIDISM
     Dosage: 150 MILLIGRAM, DAILY (1X/DAY)
     Route: 048
     Dates: start: 2019
  8. PACLITAXEL CONCENTRATE FOR SOLUTION FOR INFUSION [Suspect]
     Active Substance: PACLITAXEL
     Dosage: 263 MICROGRAM, EVERY 3 WEEKS
     Route: 042
     Dates: start: 20190307
  9. CARBOPLATIN CONCENTRATE FOR SOLUTION FOR INFUSION [Suspect]
     Active Substance: CARBOPLATIN
     Indication: OVARIAN CANCER
     Dosage: 697 MILLIGRAM, EVERY 3 WEEKS
     Route: 042
     Dates: start: 20190307
  10. CARDIOASPIRIN [Concomitant]
     Active Substance: ASPIRIN
     Indication: HYPERTENSION
     Dosage: 100 MILLIGRAM, DAILY (1X/DAY)
     Route: 048
     Dates: start: 2019

REACTIONS (1)
  - Febrile neutropenia [Recovered/Resolved]

NARRATIVE: CASE EVENT DATE: 20190408
